FAERS Safety Report 18445495 (Version 1)
Quarter: 2020Q4

REPORT INFORMATION
  Report Type: Report from Study
  Country: ER (occurrence: ER)
  Receive Date: 20201030
  Receipt Date: 20201030
  Transmission Date: 20210114
  Serious: Yes (Death, Other)
  Sender: FDA-Public Use
  Company Number: ER-SA-2020SA303207

PATIENT

DRUGS (1)
  1. RANITIDINE HYDROCHLORIDE. [Suspect]
     Active Substance: RANITIDINE HYDROCHLORIDE
     Indication: PEPTIC ULCER
     Dosage: 50 MG
     Route: 040

REACTIONS (3)
  - Incorrect drug administration rate [Fatal]
  - Product preparation error [Fatal]
  - Cardiac arrest [Fatal]
